FAERS Safety Report 9158409 (Version 2)
Quarter: 2013Q2

REPORT INFORMATION
  Report Type: Spontaneous
  Country: US (occurrence: US)
  Receive Date: 20130312
  Receipt Date: 20130522
  Transmission Date: 20140414
  Serious: No
  Sender: FDA-Public Use
  Company Number: US-PFIZER INC-2013080294

PATIENT
  Age: 71 Year
  Sex: Male

DRUGS (1)
  1. INLYTA [Suspect]
     Indication: RENAL CANCER
     Dosage: 5 MG, 2X/DAY
     Dates: start: 20130207, end: 201302

REACTIONS (5)
  - Myalgia [Unknown]
  - Fatigue [Unknown]
  - Hypertension [Unknown]
  - Disease progression [Unknown]
  - Renal cancer [Unknown]
